FAERS Safety Report 4810580-X (Version None)
Quarter: 2005Q4

REPORT INFORMATION
  Report Type: 
  Country: None (occurrence: None)
  Receive Date: 20051025
  Receipt Date: 20051025
  Transmission Date: 20060501
  Serious: Yes (Hospitalization)
  Sender: FDA-Public Use
  Company Number: None

PATIENT
  Age: 82 Year
  Sex: Male

DRUGS (21)
  1. ZOSYN [Suspect]
     Dosage: 3.375GM IV Q6H
     Route: 042
  2. VANCOMYCIN [Suspect]
     Dosage: IV 1GM Q12H
     Route: 042
  3. ACETAMINOPHEN [Concomitant]
  4. ALBUTEROL [Concomitant]
  5. BISACODYL [Concomitant]
  6. CITALOPRAM [Concomitant]
  7. EPOETIN ALFA [Concomitant]
  8. HEPARIN [Concomitant]
  9. HUMULIN R [Concomitant]
  10. IPRATROPIUM BR [Concomitant]
  11. LOPERAMIDE [Concomitant]
  12. METHYLCELLULOSE [Concomitant]
  13. METOCLOPRAMIDE HCL [Concomitant]
  14. RAMIPRIL [Concomitant]
  15. SPIRONOLACTONE [Concomitant]
  16. TRAMADOL HCL [Concomitant]
  17. VANCOMYCIN [Concomitant]
  18. AMOXICILLIN AND CLAVULANATE POTASSIUM [Concomitant]
  19. GLIPIZIDE [Concomitant]
  20. HYDRALAZINE HCL [Concomitant]
  21. ISOSORBIDE DINITRATE [Concomitant]

REACTIONS (4)
  - DEHYDRATION [None]
  - DIARRHOEA [None]
  - NAUSEA [None]
  - RENAL IMPAIRMENT [None]
